FAERS Safety Report 25151913 (Version 1)
Quarter: 2025Q2

REPORT INFORMATION
  Report Type: Spontaneous
  Country: FR (occurrence: FR)
  Receive Date: 20250402
  Receipt Date: 20250402
  Transmission Date: 20250717
  Serious: Yes (Death, Other)
  Sender: GILEAD
  Company Number: FR-GILEAD-2025-0708987

PATIENT
  Sex: Female

DRUGS (1)
  1. YESCARTA [Suspect]
     Active Substance: AXICABTAGENE CILOLEUCEL
     Indication: Diffuse large B-cell lymphoma
     Route: 065
     Dates: start: 20250303, end: 20250303

REACTIONS (4)
  - Cytokine release syndrome [Fatal]
  - Pneumonia bacterial [Fatal]
  - Immunosuppression [Fatal]
  - Nervous system disorder [Fatal]
